FAERS Safety Report 24459585 (Version 1)
Quarter: 2024Q4

REPORT INFORMATION
  Report Type: Spontaneous
  Country: JP (occurrence: JP)
  Receive Date: 20241018
  Receipt Date: 20241018
  Transmission Date: 20250115
  Serious: No
  Sender: ROCHE
  Company Number: JP-CHUGAI-2024012392

PATIENT
  Age: 20 Year
  Sex: Female
  Weight: 67.2 kg

DRUGS (7)
  1. RITUXAN [Suspect]
     Active Substance: RITUXIMAB
     Indication: Dermatomyositis
     Dosage: LATER RECEIVED 500 MG ONCE EVERY SIX MONTHS FOR THE PURPOSE OF MAINTAINING REMISSION
     Route: 041
  2. CELLCEPT [Suspect]
     Active Substance: MYCOPHENOLATE MOFETIL
     Indication: Interstitial lung disease
     Route: 065
  3. CYCLOSPORINE [Concomitant]
     Active Substance: CYCLOSPORINE
     Indication: Dermatomyositis
  4. DEXAMETHASONE [Concomitant]
     Active Substance: DEXAMETHASONE
     Indication: Dermatomyositis
     Dosage: 2.5-1.0 MG
  5. AZATHIOPRINE [Concomitant]
     Active Substance: AZATHIOPRINE
     Indication: Dermatomyositis
  6. AZATHIOPRINE [Concomitant]
     Active Substance: AZATHIOPRINE
  7. CYCLOPHOSPHAMIDE [Concomitant]
     Active Substance: CYCLOPHOSPHAMIDE
     Indication: Dermatomyositis

REACTIONS (2)
  - Abdominal symptom [Unknown]
  - Off label use [Unknown]
